FAERS Safety Report 5226365-9 (Version None)
Quarter: 2007Q1

REPORT INFORMATION
  Report Type: 
  Country: None (occurrence: None)
  Receive Date: 20061201
  Receipt Date: 20061023
  Transmission Date: 20070707
  Serious: No
  Sender: FDA-Public Use
  Company Number: US200610004229

PATIENT
  Age: 40 Year
  Sex: Male

DRUGS (1)
  1. CYMBALTA [Suspect]
     Indication: DEPRESSION
     Dosage: 60 MG, DAILY (1/D)
     Dates: start: 20060801

REACTIONS (5)
  - ANGER [None]
  - APATHY [None]
  - DEPRESSED MOOD [None]
  - DRUG INEFFECTIVE [None]
  - SUICIDAL IDEATION [None]
